FAERS Safety Report 4626637-2 (Version None)
Quarter: 2005Q1

REPORT INFORMATION
  Report Type: 
  Country: None (occurrence: None)
  Receive Date: 20050330
  Receipt Date: 20050315
  Transmission Date: 20050727
  Serious: Yes (Hospitalization)
  Sender: FDA-Public Use
  Company Number: SU-2005-003176

PATIENT
  Age: 64 Year
  Sex: Female
  Weight: 65.7716 kg

DRUGS (10)
  1. BENICAR HCT [Suspect]
     Indication: HYPERTENSION
     Dosage: 40.25 MG QD PO
     Route: 048
     Dates: start: 20040719, end: 20050222
  2. NORVASC [Suspect]
     Indication: HYPERTENSION
     Dosage: 2.5 MG QD PO
     Route: 048
     Dates: start: 20050210, end: 20050221
  3. ALLEGRA [Concomitant]
  4. NEXIUM [Concomitant]
  5. LACTAID [Concomitant]
  6. FLONASE [Concomitant]
  7. DOVONEX [Concomitant]
  8. SLO-MAG [Concomitant]
  9. CALCIUM WITH VITAMIN D [Concomitant]
  10. VITADAY + IRON [Concomitant]

REACTIONS (10)
  - CONDITION AGGRAVATED [None]
  - DYSSTASIA [None]
  - LABYRINTHITIS [None]
  - PALLOR [None]
  - PANCREATITIS [None]
  - PERICARDIAL EFFUSION [None]
  - PLEURAL EFFUSION [None]
  - PSORIASIS [None]
  - UPPER RESPIRATORY TRACT INFECTION [None]
  - WEIGHT INCREASED [None]
